FAERS Safety Report 17629728 (Version 1)
Quarter: 2020Q2

REPORT INFORMATION
  Report Type: Spontaneous
  Country: US (occurrence: US)
  Receive Date: 20200405
  Receipt Date: 20200405
  Transmission Date: 20200713
  Serious: Yes (Other)
  Sender: FDA-Public Use
  Company Number: None

PATIENT
  Age: 33 Year
  Sex: Female

DRUGS (10)
  1. OLLY ENERGY [Concomitant]
  2. OLLY STRESS [Concomitant]
  3. VESICARE [Concomitant]
     Active Substance: SOLIFENACIN SUCCINATE
  4. OLLY WOMEN^S MULTI [Concomitant]
  5. SPRING VALLEY VITAMIN D3 [Concomitant]
  6. TIGER BALM PAIN RELIEVING [Suspect]
     Active Substance: CAMPHOR (SYNTHETIC)\CAPSICUM\MENTHOL
     Indication: MYALGIA
     Route: 062
  7. TRI-SPRINTEC [Concomitant]
     Active Substance: ETHINYL ESTRADIOL\NORGESTIMATE
  8. TIGER BALM PAIN RELIEVING [Suspect]
     Active Substance: CAMPHOR (SYNTHETIC)\CAPSICUM\MENTHOL
     Indication: MUSCULOSKELETAL STIFFNESS
     Route: 062
  9. OLLY FOCUS [Concomitant]
  10. OLLY BEAUTY [Concomitant]

REACTIONS (1)
  - Chemical burn of skin [None]

NARRATIVE: CASE EVENT DATE: 20200404
